FAERS Safety Report 15167335 (Version 1)
Quarter: 2018Q3

REPORT INFORMATION
  Report Type: Spontaneous
  Country: CN (occurrence: CN)
  Receive Date: 20180719
  Receipt Date: 20180719
  Transmission Date: 20181010
  Serious: Yes (Life-Threatening, Other)
  Sender: FDA-Public Use
  Company Number: CN-MYLANLABS-2018M1054619

PATIENT
  Age: 9 Year
  Sex: Male

DRUGS (5)
  1. METOPROLOL. [Concomitant]
     Active Substance: METOPROLOL
     Indication: ELECTROCARDIOGRAM QT PROLONGED
     Dosage: 0.4 MG/KG, QD
     Dates: start: 2014
  2. AMIODARONE [Suspect]
     Active Substance: AMIODARONE
     Indication: VENTRICULAR TACHYCARDIA
     Dosage: 5 MG/KG, QD
     Route: 048
     Dates: start: 2013
  3. AMIODARONE [Suspect]
     Active Substance: AMIODARONE
     Indication: EXTRASYSTOLES
     Dosage: 15 MG/KG, QD LOADING DOSE
     Route: 048
     Dates: start: 2013
  4. AMIODARONE [Suspect]
     Active Substance: AMIODARONE
     Dosage: 3 MG/KG, QD
     Route: 048
     Dates: start: 2014
  5. VALPROIC ACID. [Suspect]
     Active Substance: VALPROIC ACID
     Indication: EPILEPSY
     Dosage: 20 MG/KG, QD
     Route: 048

REACTIONS (4)
  - Drug ineffective [Unknown]
  - Therapy non-responder [Unknown]
  - Electrocardiogram QT prolonged [Recovered/Resolved]
  - Arrhythmia [Unknown]
